FAERS Safety Report 18476765 (Version 2)
Quarter: 2020Q4

REPORT INFORMATION
  Report Type: Spontaneous
  Country: JP (occurrence: JP)
  Receive Date: 20201107
  Receipt Date: 20201123
  Transmission Date: 20210114
  Serious: Yes (Life-Threatening, Hospitalization, Other)
  Sender: FDA-Public Use
  Company Number: JP-ACCORD-207335

PATIENT
  Age: 59 Year
  Sex: Female
  Weight: 67.9 kg

DRUGS (2)
  1. ETOPOSIDE. [Suspect]
     Active Substance: ETOPOSIDE
     Indication: SMALL CELL LUNG CANCER
     Dosage: 100 MG/M2/DAY ON DAYS 1-3 EVERY 3 WEEKS FOR 4 CYCLES
  2. CISPLATIN. [Suspect]
     Active Substance: CISPLATIN
     Indication: SMALL CELL LUNG CANCER
     Dosage: 80 MG/M2/DAY ON DAY 1 EVERY 3 WEEKS FOR 4 CYCLES (135 MG/DAY).
     Route: 042

REACTIONS (5)
  - Hemiparesis [Recovered/Resolved]
  - Aortic thrombosis [Recovered/Resolved]
  - Haemorrhagic cerebral infarction [Recovered/Resolved]
  - Pancytopenia [Unknown]
  - Aphasia [Recovered/Resolved]
